FAERS Safety Report 8460273-5 (Version None)
Quarter: 2012Q2

REPORT INFORMATION
  Report Type: 
  Country: None (occurrence: None)
  Receive Date: 20120622
  Receipt Date: 20120608
  Transmission Date: 20120825
  Serious: Yes (Hospitalization)
  Sender: FDA-Public Use
  Company Number: US-ACTELION-A-US2012-65952

PATIENT

DRUGS (5)
  1. ADCIRCA [Concomitant]
  2. CIALIS [Concomitant]
  3. REMODULIN [Concomitant]
  4. HEPARIN [Concomitant]
  5. TRACLEER [Suspect]
     Indication: PULMONARY ARTERIAL HYPERTENSION
     Dosage: UNK
     Route: 048
     Dates: start: 20080722

REACTIONS (2)
  - OSTEOMYELITIS [None]
  - CATHETER PLACEMENT [None]
